FAERS Safety Report 4870872-5 (Version None)
Quarter: 2006Q1

REPORT INFORMATION
  Report Type: 
  Country: None (occurrence: None)
  Receive Date: 20060103
  Receipt Date: 20051005
  Transmission Date: 20060701
  Serious: Yes (Hospitalization)
  Sender: FDA-Public Use
  Company Number: US-MERCK-0510USA04470

PATIENT
  Age: 75 Year
  Sex: Female
  Weight: 56 kg

DRUGS (9)
  1. VIOXX [Suspect]
     Indication: ARTHRITIS
     Route: 048
     Dates: start: 20020401, end: 20040701
  2. LISINOPRIL [Concomitant]
     Route: 065
  3. MEVACOR [Concomitant]
     Route: 065
  4. WARFARIN SODIUM [Concomitant]
     Route: 065
  5. MEDROXYPROGESTERONE ACETATE [Concomitant]
     Route: 065
  6. ERYTHROMYCIN [Concomitant]
     Route: 065
  7. AFEDITAB CR [Concomitant]
     Route: 065
  8. PREMARIN [Concomitant]
     Route: 065
  9. MACROBID [Concomitant]
     Route: 065

REACTIONS (13)
  - ANKLE FRACTURE [None]
  - ATRIAL FIBRILLATION [None]
  - BRAIN CONTUSION [None]
  - CARDIAC FAILURE CONGESTIVE [None]
  - CEREBRAL HAEMORRHAGE [None]
  - CEREBROVASCULAR ACCIDENT [None]
  - OESOPHAGITIS [None]
  - PLEURAL EFFUSION [None]
  - RENAL CYST [None]
  - SKIN LACERATION [None]
  - UPPER GASTROINTESTINAL HAEMORRHAGE [None]
  - URINARY TRACT INFECTION [None]
  - VAGINAL HAEMORRHAGE [None]
